FAERS Safety Report 9361823 (Version 1)
Quarter: 2013Q2

REPORT INFORMATION
  Report Type: Spontaneous
  Country: US (occurrence: US)
  Receive Date: 20130621
  Receipt Date: 20130621
  Transmission Date: 20140414
  Serious: Yes (Hospitalization)
  Sender: FDA-Public Use
  Company Number: US-GLAXOSMITHKLINE-A0718165A

PATIENT
  Age: 65 Year
  Sex: Male
  Weight: 136.4 kg

DRUGS (6)
  1. AVANDIA [Suspect]
     Indication: TYPE 2 DIABETES MELLITUS
     Dosage: 4MG PER DAY
     Route: 048
     Dates: start: 2000, end: 200312
  2. AVANDAMET [Suspect]
     Indication: TYPE 2 DIABETES MELLITUS
     Route: 048
     Dates: start: 200312, end: 20070526
  3. GLUCOPHAGE [Concomitant]
  4. LEVOTHYROXINE [Concomitant]
  5. HYZAAR [Concomitant]
  6. GLUCOPHAGE [Concomitant]

REACTIONS (3)
  - Heart injury [Not Recovered/Not Resolved]
  - Cardiac failure congestive [Unknown]
  - Coronary artery disease [Unknown]
